FAERS Safety Report 21045231 (Version 3)
Quarter: 2023Q2

REPORT INFORMATION
  Report Type: Report from Study
  Country: EG (occurrence: EG)
  Receive Date: 20220705
  Receipt Date: 20230626
  Transmission Date: 20230721
  Serious: Yes (Life-Threatening, Hospitalization, Other)
  Sender: FDA-Public Use
  Company Number: EG-002147023-NVSC2022EG149131

PATIENT
  Age: 39 Year
  Sex: Female

DRUGS (8)
  1. AIMOVIG [Suspect]
     Active Substance: ERENUMAB-AOOE
     Indication: Migraine
     Dosage: 1 DOSAGE FORM, QMO
     Route: 058
  2. AIMOVIG [Suspect]
     Active Substance: ERENUMAB-AOOE
     Dosage: 70 MG, QMO
     Route: 058
     Dates: start: 202201
  3. TOPAMAX [Concomitant]
     Active Substance: TOPIRAMATE
     Indication: Migraine
     Dosage: 1 DOSAGE FORM, QD (STRENGTH: 70 MG), STOPPED AFTER 2 WEEKS
     Route: 065
     Dates: start: 202110
  4. TOPAMAX [Concomitant]
     Active Substance: TOPIRAMATE
     Dosage: 1 DOSAGE FORM, QD (STRENGTH: 100 MG), STARTED 2 WEEKS AFTER TOPAMAX 50 MG
     Route: 065
  5. Triptan [Concomitant]
     Indication: Product used for unknown indication
     Dosage: UNK
  6. AMITRIPTYLINE HYDROCHLORIDE [Concomitant]
     Active Substance: AMITRIPTYLINE HYDROCHLORIDE
     Indication: Product used for unknown indication
     Dosage: UNK
  7. INDERAL [Concomitant]
     Active Substance: PROPRANOLOL HYDROCHLORIDE
     Indication: Product used for unknown indication
     Dosage: UNK
  8. GAPTIN [Concomitant]
     Indication: Migraine
     Dosage: 1 DOSAGE FORM, BID
     Route: 065
     Dates: start: 202110

REACTIONS (5)
  - Dyspnoea [Recovered/Resolved]
  - Migraine [Not Recovered/Not Resolved]
  - Fatigue [Unknown]
  - Speech disorder [Unknown]
  - Drug ineffective [Unknown]

NARRATIVE: CASE EVENT DATE: 20230620
